FAERS Safety Report 19903451 (Version 1)
Quarter: 2021Q4

REPORT INFORMATION
  Report Type: Spontaneous
  Country: US (occurrence: US)
  Receive Date: 20211001
  Receipt Date: 20211001
  Transmission Date: 20220303
  Serious: No
  Sender: FDA-Public Use
  Company Number: US-MELINTA THERAPEUTICS, LLC-US-MLNT-21-00109

PATIENT
  Age: 64 Year
  Sex: Male
  Weight: 90.71 kg

DRUGS (2)
  1. KIMYRSA [Suspect]
     Active Substance: ORITAVANCIN DIPHOSPHATE
     Indication: Osteomyelitis
     Dosage: NOT PROVIDED.
     Route: 041
     Dates: start: 20210817, end: 20210817
  2. KIMYRSA [Suspect]
     Active Substance: ORITAVANCIN DIPHOSPHATE
     Dosage: NOT PROVIDED.
     Route: 041
     Dates: start: 20210831, end: 20210831

REACTIONS (8)
  - Dyspepsia [Recovered/Resolved]
  - Hypotension [Recovered/Resolved]
  - Hyperhidrosis [Recovered/Resolved]
  - Neck pain [Recovered/Resolved]
  - Chest pain [Recovered/Resolved]
  - Nausea [Recovered/Resolved]
  - Chills [Recovered/Resolved]
  - Off label use [Recovered/Resolved]

NARRATIVE: CASE EVENT DATE: 20210817
